FAERS Safety Report 4869458-8 (Version None)
Quarter: 2005Q4

REPORT INFORMATION
  Report Type: 
  Country: None (occurrence: None)
  Receive Date: 20051230
  Receipt Date: 20050218
  Transmission Date: 20060501
  Serious: Yes (Hospitalization, Disabling)
  Sender: FDA-Public Use
  Company Number: US-MERCK-0502USA02899

PATIENT
  Age: 80 Year
  Sex: Female
  Weight: 80 kg

DRUGS (13)
  1. VIOXX [Suspect]
     Indication: OSTEOARTHRITIS
     Route: 048
     Dates: start: 19990101, end: 20020101
  2. ZOLOFT [Concomitant]
     Route: 065
  3. NEXIUM [Concomitant]
     Route: 065
  4. DIAZEPAM [Concomitant]
     Route: 065
  5. BENZONATATE [Concomitant]
     Route: 065
  6. AMOXICILLIN [Concomitant]
     Route: 065
  7. RANITIDINE [Concomitant]
     Route: 065
  8. PROMETHAZINE [Concomitant]
     Route: 065
  9. GINKGO BILOBA EXTRACT [Concomitant]
     Route: 065
  10. FLAXSEED [Concomitant]
     Route: 065
  11. [THERAPY UNSPECIFIED] [Concomitant]
     Route: 065
  12. CHONDROITIN SULFATE SODIUM AND COLLAGEN AND GLUCOSAMINE [Concomitant]
     Route: 065
  13. CALCIUM (UNSPECIFIED) [Concomitant]
     Route: 065

REACTIONS (14)
  - ATRIOVENTRICULAR BLOCK FIRST DEGREE [None]
  - BRONCHOPNEUMONIA [None]
  - CEREBRAL INFARCTION [None]
  - CEREBROVASCULAR ACCIDENT [None]
  - CHEST PAIN [None]
  - DIVERTICULUM INTESTINAL [None]
  - DYSPNOEA [None]
  - FIBROCYSTIC BREAST DISEASE [None]
  - GOITRE [None]
  - HYPERLIPIDAEMIA [None]
  - HYPERTENSION [None]
  - IRRITABLE BOWEL SYNDROME [None]
  - RECTAL POLYP [None]
  - VASCULAR INSUFFICIENCY [None]
